FAERS Safety Report 25277268 (Version 1)
Quarter: 2025Q2

REPORT INFORMATION
  Report Type: Report from Study
  Country: JP (occurrence: JP)
  Receive Date: 20250507
  Receipt Date: 20250507
  Transmission Date: 20250716
  Serious: Yes (Death, Other)
  Sender: ROCHE
  Company Number: JP-CHUGAI-2024030809

PATIENT
  Age: 58 Year
  Sex: Male

DRUGS (3)
  1. TECENTRIQ [Suspect]
     Active Substance: ATEZOLIZUMAB
     Indication: Product used for unknown indication
     Route: 042
  2. CELLCEPT [Suspect]
     Active Substance: MYCOPHENOLATE MOFETIL
     Indication: Cholangitis sclerosing
     Dosage: 2000MG/DAY
     Route: 050
  3. TACROLIMUS [Concomitant]
     Active Substance: TACROLIMUS
     Indication: Cholangitis sclerosing

REACTIONS (3)
  - Biliary tract infection [Fatal]
  - Cholangitis sclerosing [Unknown]
  - Off label use [Unknown]
